FAERS Safety Report 15360909 (Version 1)
Quarter: 2020Q3

REPORT INFORMATION
  Report Type: Spontaneous
  Country: IT (occurrence: IT)
  Receive Date: 20180907
  Receipt Date: 20180907
  Transmission Date: 20201104
  Serious: Yes (Other)
  Sender: FDA-Public Use
  Company Number: IT-MYLANLABS-2018M1065734

PATIENT
  Age: 69 Year
  Sex: Male

DRUGS (6)
  1. AMIKACIN. [Suspect]
     Active Substance: AMIKACIN
     Indication: ANTIBIOTIC PROPHYLAXIS
  2. CIPROFLOXACIN. [Suspect]
     Active Substance: CIPROFLOXACIN
     Route: 065
     Dates: start: 201709
  3. LEVOFLOXACIN. [Suspect]
     Active Substance: LEVOFLOXACIN
     Indication: HAEMATURIA
     Route: 065
  4. LEVOFLOXACIN. [Suspect]
     Active Substance: LEVOFLOXACIN
     Indication: ANTIBIOTIC PROPHYLAXIS
  5. CIPROFLOXACIN. [Suspect]
     Active Substance: CIPROFLOXACIN
     Indication: HAEMATURIA
     Dosage: EMPIRICALLY TREATED
     Route: 065
     Dates: start: 201708
  6. AMIKACIN. [Suspect]
     Active Substance: AMIKACIN
     Indication: HAEMATURIA
     Dosage: FOR THE FOLLOWING THREE DIALYSIS SESSIONS (SCHEDULED FOR A TOTAL OF ONE WEEK)
     Route: 042

REACTIONS (1)
  - Pathogen resistance [Unknown]
